FAERS Safety Report 4929334-9 (Version None)
Quarter: 2006Q1

REPORT INFORMATION
  Report Type: 
  Country: None (occurrence: None)
  Receive Date: 20060223
  Receipt Date: 20060130
  Transmission Date: 20060701
  Serious: Yes (Hospitalization, Disabling, Other)
  Sender: FDA-Public Use
  Company Number: USA0508104407

PATIENT
  Age: 84 Year
  Sex: Female
  Weight: 77.3 kg

DRUGS (11)
  1. HUMALOG [Suspect]
     Indication: DIABETES MELLITUS
     Dosage: SEE IMAGE
     Dates: start: 20040101
  2. HUMALOG [Suspect]
     Indication: DIABETES MELLITUS
     Dosage: SEE IMAGE
     Dates: start: 20040101
  3. HUMALOG [Suspect]
     Indication: DIABETES MELLITUS
     Dosage: SEE IMAGE
     Dates: start: 20050201
  4. HUMULIN N [Suspect]
     Indication: DIABETES MELLITUS
     Dosage: SEE IMAGE
     Dates: start: 20040101
  5. HUMULIN N [Suspect]
     Indication: DIABETES MELLITUS
     Dosage: SEE IMAGE
     Dates: start: 20040101
  6. HUMULIN N [Suspect]
     Indication: DIABETES MELLITUS
     Dosage: SEE IMAGE
     Dates: start: 20040101
  7. HUMULIN N [Suspect]
  8. HUMALOG PEN (HUMALOG PEN) PEN, DISPOSABLE [Concomitant]
  9. HUMALOG PEN (HUMALOG PEN) PEN, DISPOSABLE [Concomitant]
  10. HUMULIN NPH PEN (HUMULIN N PEN) PEN, DISPOSABLE [Concomitant]
  11. HUMULIN N PEN (HUMULIN N PEN) PEN, DISPOSABLE [Concomitant]

REACTIONS (13)
  - ARTHRITIS [None]
  - BACK PAIN [None]
  - CELLULITIS [None]
  - DEVICE FAILURE [None]
  - DYSPNOEA [None]
  - ERYTHEMA [None]
  - HYPERMETROPIA [None]
  - PHARMACEUTICAL PRODUCT COMPLAINT [None]
  - SPINAL DISORDER [None]
  - SPINAL FUSION ACQUIRED [None]
  - THROMBOSIS [None]
  - VISUAL DISTURBANCE [None]
  - WOUND SECRETION [None]
